FAERS Safety Report 7181769-2 (Version None)
Quarter: 2010Q4

REPORT INFORMATION
  Report Type: 
  Country: None (occurrence: None)
  Receive Date: 20101221
  Receipt Date: 20100429
  Transmission Date: 20110411
  Serious: No
  Sender: FDA-Public Use
  Company Number: US-AMGEN-TCS409458

PATIENT

DRUGS (5)
  1. ENBREL [Suspect]
     Indication: PSORIASIS
     Dosage: UNK UNK, UNK
     Dates: start: 20040101
  2. ENBREL [Suspect]
     Indication: PSORIATIC ARTHROPATHY
  3. ATORVASTATIN CALCIUM [Concomitant]
     Dosage: UNK UNK, UNK
  4. UNSPECIFIED BETA BLOCKER [Concomitant]
     Dosage: UNK UNK, UNK
  5. METHOTREXATE [Concomitant]
     Dosage: UNK UNK, UNK

REACTIONS (1)
  - THROMBOCYTOPENIA [None]
